FAERS Safety Report 26209358 (Version 1)
Quarter: 2025Q4

REPORT INFORMATION
  Report Type: Report from Study
  Country: JP (occurrence: JP)
  Receive Date: 20251229
  Receipt Date: 20251229
  Transmission Date: 20260118
  Serious: Yes (Hospitalization, Other)
  Sender: BRISTOL-MYERS SQUIBB COMPANY
  Company Number: JP-ONO-2024JP022331

PATIENT
  Age: 71 Year
  Sex: Male
  Weight: 51.7 kg

DRUGS (3)
  1. OPDIVO [Suspect]
     Active Substance: NIVOLUMAB
     Indication: Non-small cell lung cancer
     Dosage: 360 MG
     Route: 041
     Dates: start: 20240625, end: 20240820
  2. CARBOPLATIN [Suspect]
     Active Substance: CARBOPLATIN
     Indication: Non-small cell lung cancer
     Dosage: AUC 5
     Dates: start: 20240625, end: 20240820
  3. PACLITAXEL [Suspect]
     Active Substance: PACLITAXEL
     Indication: Non-small cell lung cancer
     Dosage: 200 MG/M2
     Dates: start: 20240625, end: 20240820

REACTIONS (10)
  - Pneumonia [Not Recovered/Not Resolved]
  - Immune-mediated pancreatitis [Not Recovered/Not Resolved]
  - Immune-mediated cholangitis [Not Recovered/Not Resolved]
  - Diabetes mellitus [Recovered/Resolved]
  - Pulmonary fistula [Recovered/Resolved]
  - Neutrophil count decreased [Recovered/Resolved]
  - Taste disorder [Recovered/Resolved]
  - Constipation [Recovered/Resolved]
  - Decreased appetite [Recovered/Resolved]
  - Pyrexia [Recovered/Resolved]

NARRATIVE: CASE EVENT DATE: 20240626
